FAERS Safety Report 15311734 (Version 19)
Quarter: 2021Q3

REPORT INFORMATION
  Report Type: Spontaneous
  Country: DE (occurrence: DE)
  Receive Date: 20180823
  Receipt Date: 20210821
  Transmission Date: 20211014
  Serious: Yes (Hospitalization, Other)
  Sender: FDA-Public Use
  Company Number: PHHY2018DE074986

PATIENT
  Age: 78 Year
  Sex: Female
  Weight: 91 kg

DRUGS (67)
  1. DOXYCYCLINE. [Suspect]
     Active Substance: DOXYCYCLINE
     Dosage: 400 MG, QD
     Route: 048
  2. COBIMETINIB. [Suspect]
     Active Substance: COBIMETINIB
     Dosage: 20 MG, QD
     Route: 048
     Dates: start: 20180116, end: 20190729
  3. RAMIPRIL. [Concomitant]
     Active Substance: RAMIPRIL
     Dosage: 5 MG,0.5
     Route: 048
     Dates: start: 201709, end: 20190403
  4. INSUMAN RAPID [Concomitant]
     Active Substance: INSULIN HUMAN
     Indication: TYPE 2 DIABETES MELLITUS
     Dosage: UNK
     Route: 058
  5. PANTOPRAZOLE [Concomitant]
     Active Substance: PANTOPRAZOLE
     Dosage: 80 MG, QD
     Route: 048
     Dates: start: 20171221, end: 201801
  6. VALSARTAN. [Concomitant]
     Active Substance: VALSARTAN
     Dosage: 52 MG, QD
     Route: 048
     Dates: start: 20190410
  7. DEXAMETHASONE. [Concomitant]
     Active Substance: DEXAMETHASONE
     Dosage: 4 MG
     Route: 048
     Dates: start: 20190922, end: 20190922
  8. DEXAMETHASONE. [Concomitant]
     Active Substance: DEXAMETHASONE
     Dosage: 8 MG
     Route: 048
     Dates: start: 20191002, end: 20191008
  9. DEXAMETHASONE. [Concomitant]
     Active Substance: DEXAMETHASONE
     Dosage: 12 MG
     Route: 048
     Dates: start: 20190921, end: 20191001
  10. COBIMETINIB. [Suspect]
     Active Substance: COBIMETINIB
     Dosage: 20 MG,QD
     Route: 048
     Dates: start: 201803, end: 20190729
  11. VEMURAFENIB. [Suspect]
     Active Substance: VEMURAFENIB
     Dosage: 480 MG, HALF A DAY
     Route: 048
     Dates: start: 20180116, end: 20190729
  12. VEMURAFENIB. [Suspect]
     Active Substance: VEMURAFENIB
     Dosage: 960MG
     Route: 048
     Dates: start: 20180116, end: 20190729
  13. VEMURAFENIB. [Suspect]
     Active Substance: VEMURAFENIB
     Dosage: 960 MG, HALF A DAY
     Route: 048
     Dates: start: 20180703, end: 20190115
  14. ATORVASTATIN [Concomitant]
     Active Substance: ATORVASTATIN
     Dosage: UNK (0.33 DAY)
     Route: 058
     Dates: start: 20190410
  15. DEXAMETHASONE. [Concomitant]
     Active Substance: DEXAMETHASONE
     Indication: MALIGNANT MELANOMA
     Dosage: 36 MG, QD  (0.33 A DAY)
     Route: 048
     Dates: start: 20190921, end: 20191001
  16. DEXAMETHASONE. [Concomitant]
     Active Substance: DEXAMETHASONE
     Dosage: 2 MG, QD
     Route: 048
     Dates: start: 20191113
  17. DEXAMETHASONE. [Concomitant]
     Active Substance: DEXAMETHASONE
     Dosage: 8 MG
     Route: 048
     Dates: start: 20190923
  18. VEMURAFENIB. [Suspect]
     Active Substance: VEMURAFENIB
     Indication: MALIGNANT MELANOMA
     Dosage: 960 MG, HALF A DAY
     Route: 048
     Dates: start: 20180103, end: 20180109
  19. VEMURAFENIB. [Suspect]
     Active Substance: VEMURAFENIB
     Dosage: 960 MG,0.5
     Route: 048
     Dates: start: 20180110, end: 20190115
  20. VEMURAFENIB. [Suspect]
     Active Substance: VEMURAFENIB
     Dosage: 720 MG, HALF A DAY
     Route: 048
     Dates: start: 20180113, end: 20180116
  21. PRADAXA [Concomitant]
     Active Substance: DABIGATRAN ETEXILATE MESYLATE
     Dosage: 110 MG,0.5
     Route: 048
     Dates: start: 201404
  22. SACUBITRIL [Concomitant]
     Active Substance: SACUBITRIL
     Dosage: 24 MG,0.5
     Route: 048
     Dates: start: 20190404
  23. DEXAMETHASONE. [Concomitant]
     Active Substance: DEXAMETHASONE
     Dosage: 8 MG, QD (0.5 A DAY)
     Route: 048
     Dates: start: 20190922, end: 20190922
  24. DEXAMETHASONE. [Concomitant]
     Active Substance: DEXAMETHASONE
     Dosage: 4 MG,QD
     Route: 048
     Dates: start: 20191009, end: 20191012
  25. COBIMETINIB. [Suspect]
     Active Substance: COBIMETINIB
     Indication: MALIGNANT MELANOMA
     Dosage: 60 MG,QD
     Route: 048
     Dates: start: 20180103, end: 20190729
  26. COBIMETINIB. [Suspect]
     Active Substance: COBIMETINIB
     Dosage: UNK
     Route: 048
     Dates: start: 20190527, end: 20190531
  27. COBIMETINIB. [Suspect]
     Active Substance: COBIMETINIB
     Dosage: 40 MG,QD
     Route: 048
     Dates: start: 20180113, end: 20180116
  28. VEMURAFENIB. [Suspect]
     Active Substance: VEMURAFENIB
     Dosage: 480 MG, HALF A DAY
     Route: 048
     Dates: start: 20180121
  29. VEMURAFENIB. [Suspect]
     Active Substance: VEMURAFENIB
     Dosage: 960 MG, HALF A DAY
     Route: 048
     Dates: start: 20180226
  30. NEPRESOL [Concomitant]
     Indication: HYPERTENSION
     Dosage: 12.5 MG, QD
     Route: 048
  31. HYDROCHLOROTHIAZIDE. [Concomitant]
     Active Substance: HYDROCHLOROTHIAZIDE
     Indication: HYPERTENSION
     Dosage: 25 MG,QD
     Route: 048
     Dates: start: 201709, end: 201712
  32. SACUBITRIL [Concomitant]
     Active Substance: SACUBITRIL
     Dosage: 48 MG, QD
     Route: 048
     Dates: start: 20190410
  33. DEXAMETHASONE. [Concomitant]
     Active Substance: DEXAMETHASONE
     Dosage: 24 MG, QD (0.33 A DAY)
     Route: 048
     Dates: start: 20190923
  34. DEXAMETHASONE. [Concomitant]
     Active Substance: DEXAMETHASONE
     Dosage: 8 MG,0.33
     Route: 048
     Dates: start: 20190923, end: 20191012
  35. HUMALOG [Concomitant]
     Active Substance: INSULIN LISPRO
     Indication: DIABETES MELLITUS
     Dosage: UNK,0.33
     Route: 058
     Dates: start: 20190404
  36. DOXYCYCLINE. [Suspect]
     Active Substance: DOXYCYCLINE
     Dosage: 100 MG (0.5 PER DAY)
     Route: 048
     Dates: start: 20180529, end: 20180619
  37. COBIMETINIB. [Suspect]
     Active Substance: COBIMETINIB
     Dosage: 20 MG (0.33 PER DAY)
     Route: 048
     Dates: start: 201803
  38. VEMURAFENIB. [Suspect]
     Active Substance: VEMURAFENIB
     Dosage: UNK
     Route: 065
  39. PANTOPRAZOLE [Concomitant]
     Active Substance: PANTOPRAZOLE
     Indication: PROPHYLAXIS
     Dosage: 80 MG, QD
     Route: 048
     Dates: start: 201404
  40. PANTOPRAZOLE [Concomitant]
     Active Substance: PANTOPRAZOLE
     Dosage: 10 MG, QD
     Route: 048
     Dates: start: 20171221, end: 201801
  41. PRADAXA [Concomitant]
     Active Substance: DABIGATRAN ETEXILATE MESYLATE
     Indication: ATRIAL FIBRILLATION
     Dosage: 220 MG, QD
     Route: 048
     Dates: start: 201404
  42. TORASEMID [Concomitant]
     Active Substance: TORSEMIDE
     Indication: HYPERTENSION
     Dosage: 20 MG, QD
     Route: 048
     Dates: end: 20190403
  43. LANTUS [Concomitant]
     Active Substance: INSULIN GLARGINE
     Indication: TYPE 2 DIABETES MELLITUS
     Dosage: 32 IU, QD
     Route: 058
  44. SACUBITRIL [Concomitant]
     Active Substance: SACUBITRIL
     Indication: HYPERTENSION
     Dosage: 48 MG, QD
     Route: 048
     Dates: start: 20190404
  45. VALSARTAN. [Concomitant]
     Active Substance: VALSARTAN
     Dosage: 26 MG,0.5
     Route: 048
     Dates: start: 20190404
  46. ATORVASTATIN [Concomitant]
     Active Substance: ATORVASTATIN
     Dosage: 20 MG,0.5
     Route: 048
     Dates: start: 20190404
  47. DEXAMETHASONE. [Concomitant]
     Active Substance: DEXAMETHASONE
     Dosage: 16 MG, QD
     Route: 048
     Dates: start: 20191002, end: 20191008
  48. DIHYDRALAZINE [Concomitant]
     Active Substance: DIHYDRALAZINE
     Indication: HYPERTENSION
     Dosage: 50 MG, QD
     Route: 048
     Dates: start: 20190410, end: 20190410
  49. DIHYDRALAZINE [Concomitant]
     Active Substance: DIHYDRALAZINE
     Dosage: 25 MG,0.5
     Route: 048
     Dates: start: 20190410
  50. AZITHROMYCIN ANHYDROUS. [Concomitant]
     Active Substance: AZITHROMYCIN ANHYDROUS
     Indication: BORRELIA INFECTION
     Dosage: UNK
     Route: 048
     Dates: start: 201805, end: 201805
  51. VEMURAFENIB. [Suspect]
     Active Substance: VEMURAFENIB
     Dosage: 960 MG,0.5
     Route: 048
     Dates: start: 20180226, end: 20180109
  52. KALINOR [Concomitant]
     Indication: PROPHYLAXIS
     Dosage: 1200 MG, QD (SLOW RELEASE)
     Route: 048
     Dates: start: 201709
  53. METOPROLOLSUCCINAAT [Concomitant]
     Active Substance: METOPROLOL SUCCINATE
     Dosage: 47.5 MG,0.5
     Route: 048
     Dates: start: 201404
  54. COBIMETINIB. [Suspect]
     Active Substance: COBIMETINIB
     Dosage: 20 MG, QD
     Route: 048
     Dates: start: 20180121
  55. VEMURAFENIB. [Suspect]
     Active Substance: VEMURAFENIB
     Dosage: UNK
     Route: 048
     Dates: end: 20190729
  56. KALINOR [Concomitant]
     Dosage: 600MG 0.5 DAY (SLOW RELEASE)
     Route: 048
     Dates: start: 201709
  57. VALSARTAN. [Concomitant]
     Active Substance: VALSARTAN
     Indication: HYPERTENSION
     Dosage: 52 MG, QD (0.5 A DAY)
     Route: 048
     Dates: start: 20190404
  58. ATORVASTATIN [Concomitant]
     Active Substance: ATORVASTATIN
     Indication: CARDIOVASCULAR EVENT PROPHYLAXIS
     Dosage: 40 MG, QD
     Route: 048
     Dates: start: 20190404
  59. HUMALOG [Concomitant]
     Active Substance: INSULIN LISPRO
     Dosage: UNK,0.33
     Route: 058
     Dates: start: 20190410
  60. PANTOZOL [Concomitant]
     Active Substance: PANTOPRAZOLE SODIUM
     Indication: PRODUCT USED FOR UNKNOWN INDICATION
     Dosage: 40 MG,QD
     Route: 048
     Dates: start: 20180207
  61. DOXYCYCLINE. [Suspect]
     Active Substance: DOXYCYCLINE
     Indication: BORRELIA INFECTION
     Dosage: 200 MG, QD
     Route: 048
     Dates: start: 20180529, end: 20180619
  62. COBIMETINIB. [Suspect]
     Active Substance: COBIMETINIB
     Dosage: UNK
     Route: 048
     Dates: end: 20190729
  63. COBIMETINIB. [Suspect]
     Active Substance: COBIMETINIB
     Dosage: 60 MG, QD
     Route: 048
     Dates: start: 20180703
  64. AMLODIPINE [Concomitant]
     Active Substance: AMLODIPINE BESYLATE
     Indication: HYPERTENSION
     Dosage: 5 MG, QD
     Route: 048
     Dates: start: 201404, end: 20190403
  65. RAMIPRIL. [Concomitant]
     Active Substance: RAMIPRIL
     Indication: HYPERTENSION
     Dosage: 10 MG,QD
     Route: 048
     Dates: start: 201709, end: 20190403
  66. TORASEMID [Concomitant]
     Active Substance: TORSEMIDE
     Dosage: 10 MG (0.5 PER DAY)
     Route: 048
     Dates: start: 20190403
  67. METOPROLOLSUCCINAAT [Concomitant]
     Active Substance: METOPROLOL SUCCINATE
     Indication: HYPERTENSION
     Dosage: 95 MG, QD
     Route: 048
     Dates: start: 201404

REACTIONS (50)
  - Escherichia urinary tract infection [Recovered/Resolved]
  - Renal failure [Not Recovered/Not Resolved]
  - Hyperthyroidism [Recovering/Resolving]
  - Visual impairment [Not Recovered/Not Resolved]
  - Hypertensive heart disease [Not Recovered/Not Resolved]
  - Rash [Recovered/Resolved]
  - Borrelia infection [Recovered/Resolved]
  - Borrelia infection [Recovered/Resolved]
  - Skin bacterial infection [Recovered/Resolved]
  - Decreased appetite [Not Recovered/Not Resolved]
  - Diabetes mellitus [Not Recovered/Not Resolved]
  - Solar dermatitis [Recovered/Resolved]
  - Pain [Recovered/Resolved]
  - Blood lactate dehydrogenase increased [Not Recovered/Not Resolved]
  - Diarrhoea [Not Recovered/Not Resolved]
  - Diarrhoea [Recovered/Resolved]
  - Left ventricular failure [Not Recovered/Not Resolved]
  - Nausea [Recovered/Resolved]
  - Photosensitivity reaction [Recovered/Resolved]
  - Chronic gastritis [Unknown]
  - Fatigue [Not Recovered/Not Resolved]
  - Back pain [Recovered/Resolved]
  - Diarrhoea [Recovered/Resolved]
  - Urosepsis [Recovered/Resolved]
  - Cardiac failure [Not Recovered/Not Resolved]
  - Diarrhoea [Recovered/Resolved]
  - Escherichia urinary tract infection [Recovered/Resolved]
  - Illness [Recovered/Resolved]
  - Blood lactate dehydrogenase increased [Recovered/Resolved]
  - Urinary tract infection [Recovered/Resolved]
  - Angioedema [Recovered/Resolved]
  - Arrhythmia [Recovering/Resolving]
  - Cough [Recovered/Resolved]
  - Alopecia [Recovered/Resolved]
  - Goitre [Not Recovered/Not Resolved]
  - Musculoskeletal chest pain [Recovered/Resolved]
  - Eyelid oedema [Recovered/Resolved]
  - Decreased appetite [Recovered/Resolved]
  - Gastrooesophageal reflux disease [Not Recovered/Not Resolved]
  - Epilepsy [Not Recovered/Not Resolved]
  - Norovirus infection [Recovered/Resolved]
  - Urinary tract infection [Recovered/Resolved]
  - Solar dermatitis [Recovered/Resolved]
  - Bundle branch block right [Unknown]
  - Bundle branch block right [Unknown]
  - Photosensitivity reaction [Not Recovered/Not Resolved]
  - Hypoacusis [Not Recovered/Not Resolved]
  - Hypertension [Recovered/Resolved with Sequelae]
  - Abdominal pain [Recovered/Resolved]
  - Chest pain [Recovered/Resolved]

NARRATIVE: CASE EVENT DATE: 20180108
